FAERS Safety Report 16130459 (Version 2)
Quarter: 2019Q2

REPORT INFORMATION
  Report Type: Report from Study
  Country: US (occurrence: US)
  Receive Date: 20190328
  Receipt Date: 20190425
  Transmission Date: 20190711
  Serious: Yes (Other)
  Sender: FDA-Public Use
  Company Number: US-CORCEPT THERAPEUTICS INC.-US-2018CRT000870

PATIENT

DRUGS (6)
  1. KORLYM [Suspect]
     Active Substance: MIFEPRISTONE
     Indication: CUSHING^S SYNDROME
     Dosage: 300 MG, QD
     Route: 048
     Dates: start: 20180725, end: 20180807
  2. KORLYM [Suspect]
     Active Substance: MIFEPRISTONE
     Dosage: 600 MG, QD
     Route: 048
     Dates: start: 20180808, end: 20180924
  3. VITAMIN 15 [Concomitant]
     Indication: ENERGY INCREASED
     Dosage: UNK
  4. VITAMIN 15 [Concomitant]
     Dosage: UNK
  5. OMEPRAZOLE. [Concomitant]
     Active Substance: OMEPRAZOLE
     Indication: PRODUCT USED FOR UNKNOWN INDICATION
     Dosage: UNK
  6. KORLYM [Suspect]
     Active Substance: MIFEPRISTONE
     Dosage: 900 MG, QD
     Route: 048
     Dates: start: 20180925, end: 20190312

REACTIONS (19)
  - Depression [Recovering/Resolving]
  - Blood glucose increased [Recovering/Resolving]
  - Cervical cyst [Unknown]
  - Vaginal haemorrhage [Not Recovered/Not Resolved]
  - Snoring [Unknown]
  - Nausea [Recovering/Resolving]
  - Peripheral swelling [Unknown]
  - Uterine enlargement [Unknown]
  - Asthenia [Recovered/Resolved]
  - Dizziness [Recovering/Resolving]
  - Endometrial thickening [Unknown]
  - Amenorrhoea [Not Recovered/Not Resolved]
  - Anxiety [Recovering/Resolving]
  - Abdominal pain [Unknown]
  - Blood pressure increased [Recovered/Resolved]
  - Precancerous cells present [Unknown]
  - Poor quality sleep [Unknown]
  - Fatigue [Not Recovered/Not Resolved]
  - Arthralgia [Unknown]

NARRATIVE: CASE EVENT DATE: 2018
